FAERS Safety Report 25569991 (Version 1)
Quarter: 2025Q3

REPORT INFORMATION
  Report Type: Spontaneous
  Country: US (occurrence: US)
  Receive Date: 20250717
  Receipt Date: 20250717
  Transmission Date: 20251021
  Serious: No
  Sender: ENDO
  Company Number: US-ENDO USA, INC.-2025-001131

PATIENT
  Sex: Female

DRUGS (4)
  1. CALCITONIN SALMON [Suspect]
     Active Substance: CALCITONIN SALMON
     Indication: Product used for unknown indication
     Route: 045
  2. CALCITONIN SALMON [Suspect]
     Active Substance: CALCITONIN SALMON
     Indication: Product used for unknown indication
     Route: 045
  3. CALCITONIN SALMON [Suspect]
     Active Substance: CALCITONIN SALMON
     Route: 045
  4. CALCITONIN SALMON [Suspect]
     Active Substance: CALCITONIN SALMON
     Route: 045

REACTIONS (3)
  - Headache [Unknown]
  - Product with quality issue administered [Not Recovered/Not Resolved]
  - Product odour abnormal [Unknown]

NARRATIVE: CASE EVENT DATE: 20250101
